FAERS Safety Report 5377958-X (Version None)
Quarter: 2007Q2

REPORT INFORMATION
  Report Type: 
  Country: None (occurrence: None)
  Receive Date: 20070629
  Receipt Date: 20070614
  Transmission Date: 20071010
  Serious: Yes (Other)
  Sender: FDA-Public Use
  Company Number: SPV1-2007-01197

PATIENT
  Age: 20 Year
  Sex: Male
  Weight: 74.8 kg

DRUGS (4)
  1. DAYTRANA [Suspect]
     Dosage: TRANSDERMAL
     Route: 062
     Dates: start: 20060801
  2. INFLUENZA VACCINE(INFLUENZA VACCINE) [Suspect]
     Dates: start: 20070212, end: 20070212
  3. NEXIUM [Concomitant]
  4. CLONAZEPAM [Concomitant]

REACTIONS (8)
  - APPLICATION SITE IRRITATION [None]
  - PETECHIAE [None]
  - RASH ERYTHEMATOUS [None]
  - RASH GENERALISED [None]
  - RASH MACULO-PAPULAR [None]
  - RAYNAUD'S PHENOMENON [None]
  - SCLERODERMA [None]
  - VACCINATION COMPLICATION [None]
